FAERS Safety Report 21269999 (Version 1)
Quarter: 2022Q3

REPORT INFORMATION
  Report Type: Spontaneous
  Country: US (occurrence: US)
  Receive Date: 20220830
  Receipt Date: 20220830
  Transmission Date: 20221027
  Serious: Yes (Other)
  Sender: FDA-Public Use
  Company Number: US-GLAXOSMITHKLINE-US2022AMR124231

PATIENT

DRUGS (1)
  1. ZEJULA [Suspect]
     Active Substance: NIRAPARIB
     Indication: Neoplasm malignant
     Dosage: UNK

REACTIONS (8)
  - Gastric cancer [Recovered/Resolved]
  - Colon cancer [Recovered/Resolved]
  - Nausea [Unknown]
  - Hypertension [Unknown]
  - Blood glucose increased [Unknown]
  - Fatigue [Unknown]
  - Heart rate increased [Unknown]
  - Female genital operation [Unknown]
